FAERS Safety Report 14928066 (Version 1)
Quarter: 2018Q2

REPORT INFORMATION
  Report Type: Spontaneous
  Country: BR (occurrence: BR)
  Receive Date: 20180523
  Receipt Date: 20180523
  Transmission Date: 20180711
  Serious: Yes (Hospitalization)
  Sender: FDA-Public Use
  Company Number: BR-FRESENIUS KABI-FK201806081

PATIENT
  Age: 44 Year
  Sex: Male

DRUGS (1)
  1. PENTAMIDINE INJECTION (MANUFACTURER UNKNOWN) [Suspect]
     Active Substance: PENTAMIDINE
     Indication: CUTANEOUS LEISHMANIASIS
     Route: 065
     Dates: start: 201701

REACTIONS (3)
  - Product use in unapproved indication [Unknown]
  - Diabetes mellitus [Unknown]
  - Hyperglycaemic hyperosmolar nonketotic syndrome [Unknown]
